FAERS Safety Report 4465938-8 (Version None)
Quarter: 2004Q3

REPORT INFORMATION
  Report Type: 
  Country: None (occurrence: None)
  Receive Date: 20040930
  Receipt Date: 20040930
  Transmission Date: 20050211
  Serious: Yes (Hospitalization)
  Sender: FDA-Public Use
  Company Number: None

PATIENT
  Sex: Male

DRUGS (9)
  1. LISINOPRIL [Suspect]
     Indication: HYPERTENSION
     Dosage: 10 MG DAILY ORAL
     Route: 048
     Dates: start: 20040605, end: 20040605
  2. HYDROCHLOROTHIAZIDE/TRIAMTERENE [Concomitant]
  3. LORATADINE [Concomitant]
  4. FLUNISOLIDE [Concomitant]
  5. IPRATROPIUM BROMIDE [Concomitant]
  6. DOCUSATE [Concomitant]
  7. AMITRIPTYLINE HCL [Concomitant]
  8. VICODIN [Concomitant]
  9. IBUPROFEN [Concomitant]

REACTIONS (2)
  - ANGIONEUROTIC OEDEMA [None]
  - OROPHARYNGEAL SWELLING [None]
